FAERS Safety Report 25232363 (Version 1)
Quarter: 2025Q2

REPORT INFORMATION
  Report Type: Report from Study
  Country: US (occurrence: US)
  Receive Date: 20250423
  Receipt Date: 20250423
  Transmission Date: 20250716
  Serious: Yes (Other)
  Sender: ABBVIE
  Company Number: US-ABBVIE-6103444

PATIENT
  Age: 29 Year
  Sex: Female

DRUGS (2)
  1. SKYRIZI [Suspect]
     Active Substance: RISANKIZUMAB-RZAA
     Indication: Crohn^s disease
     Route: 058
     Dates: start: 20250408
  2. SKYRIZI [Suspect]
     Active Substance: RISANKIZUMAB-RZAA
     Indication: Crohn^s disease
     Route: 042
     Dates: start: 20250116

REACTIONS (22)
  - Loss of consciousness [Unknown]
  - Upper respiratory tract infection [Not Recovered/Not Resolved]
  - Inflammatory pain [Not Recovered/Not Resolved]
  - Sinus congestion [Not Recovered/Not Resolved]
  - Hypotension [Not Recovered/Not Resolved]
  - Arthralgia [Not Recovered/Not Resolved]
  - Dizziness [Recovered/Resolved]
  - Somnolence [Recovered/Resolved]
  - Nasal dryness [Not Recovered/Not Resolved]
  - Headache [Not Recovered/Not Resolved]
  - Rotavirus infection [Recovered/Resolved]
  - Pain [Recovered/Resolved]
  - Sinusitis [Recovering/Resolving]
  - Ear infection [Unknown]
  - Bronchitis [Recovering/Resolving]
  - Blood iron decreased [Unknown]
  - Iron binding capacity total increased [Unknown]
  - Transferrin saturation abnormal [Unknown]
  - Haematemesis [Not Recovered/Not Resolved]
  - Fatigue [Not Recovered/Not Resolved]
  - Platelet count increased [Unknown]
  - Red blood cell count increased [Unknown]

NARRATIVE: CASE EVENT DATE: 20250101
